FAERS Safety Report 5413078-3 (Version None)
Quarter: 2007Q3

REPORT INFORMATION
  Report Type: 
  Country: None (occurrence: None)
  Receive Date: 20070813
  Receipt Date: 20070801
  Transmission Date: 20080115
  Serious: Yes (Other)
  Sender: FDA-Public Use
  Company Number: US-PFIZER INC-2007059412

PATIENT
  Sex: Female
  Weight: 73.9 kg

DRUGS (5)
  1. SUTENT [Suspect]
     Indication: MYELODYSPLASTIC SYNDROME
     Route: 048
     Dates: start: 20061106, end: 20070306
  2. XANAX [Concomitant]
     Dosage: DAILY DOSE:5MG
  3. TENORMIN [Concomitant]
  4. SYNTHROID [Concomitant]
     Dosage: DAILY DOSE:75MCG
  5. ALL OTHER THERAPEUTIC PRODUCTS [Concomitant]
     Dosage: DAILY DOSE:500MG-FREQ:X 3

REACTIONS (2)
  - DIARRHOEA [None]
  - MENTAL STATUS CHANGES [None]
